FAERS Safety Report 11170655 (Version 1)
Quarter: 2015Q2

REPORT INFORMATION
  Report Type: Spontaneous
  Country: US (occurrence: US)
  Receive Date: 20150608
  Receipt Date: 20150608
  Transmission Date: 20150821
  Serious: No
  Sender: FDA-Public Use
  Company Number: US-DRREDDYS-USA/USA/14/0041240

PATIENT
  Age: 27 Year
  Sex: Male
  Weight: 88.4 kg

DRUGS (1)
  1. MUCINEX ALLERGY [Suspect]
     Active Substance: FEXOFENADINE HYDROCHLORIDE
     Indication: HYPERSENSITIVITY
     Route: 048
     Dates: start: 20140610, end: 20140619

REACTIONS (5)
  - Wrong technique in drug usage process [Unknown]
  - Drug ineffective [Unknown]
  - Product quality issue [Unknown]
  - Back pain [Recovering/Resolving]
  - Extra dose administered [Unknown]

NARRATIVE: CASE EVENT DATE: 20140618
